APPROVED DRUG PRODUCT: VERAPAMIL HYDROCHLORIDE
Active Ingredient: VERAPAMIL HYDROCHLORIDE
Strength: 200MG
Dosage Form/Route: CAPSULE, EXTENDED RELEASE;ORAL
Application: A078306 | Product #002
Applicant: RISING PHARMA HOLDINGS INC
Approved: Aug 9, 2007 | RLD: No | RS: No | Type: DISCN